FAERS Safety Report 4433821-X (Version None)
Quarter: 2004Q3

REPORT INFORMATION
  Report Type: 
  Country: None (occurrence: None)
  Receive Date: 20040826
  Receipt Date: 20040820
  Transmission Date: 20050211
  Serious: Yes (Other)
  Sender: FDA-Public Use
  Company Number: US-ROCHE-378291

PATIENT
  Age: 60 Year
  Sex: Male
  Weight: 110 kg

DRUGS (1)
  1. ROCEPHIN [Suspect]
     Indication: INFECTION
     Dosage: STRENGTH REPORT AS 2000MG OVER 20ML. DOSAGER REGIMEN REPORTED AS EVERY 12.
     Route: 042
     Dates: start: 20040505, end: 20040506

REACTIONS (1)
  - CHEST DISCOMFORT [None]
